FAERS Safety Report 4539643-3 (Version None)
Quarter: 2004Q4

REPORT INFORMATION
  Report Type: 
  Country: None (occurrence: None)
  Receive Date: 20041228
  Receipt Date: 20040422
  Transmission Date: 20050328
  Serious: Yes (Hospitalization)
  Sender: FDA-Public Use
  Company Number: US-MERCK-0404USA02010

PATIENT
  Age: 79 Year
  Sex: Female

DRUGS (11)
  1. ZOCOR [Suspect]
     Route: 048
     Dates: start: 20021001, end: 20031001
  2. PROTONIX [Concomitant]
     Route: 048
  3. VERAPAMIL [Concomitant]
     Route: 065
  4. CATAPRES-TTS-1 [Concomitant]
     Route: 065
  5. HYDRODIURIL [Concomitant]
     Route: 048
  6. SYNTHROID [Concomitant]
     Route: 065
  7. FOSAMAX [Concomitant]
     Route: 048
  8. CALCIUM (UNSPECIFIED) [Concomitant]
     Route: 065
  9. VITAMIN D (UNSPECIFIED) [Concomitant]
     Route: 065
  10. TYLENOL W/ CODEINE [Concomitant]
     Route: 065
  11. [THERAPY UNSPECIFIED] [Concomitant]
     Route: 065

REACTIONS (8)
  - COLITIS ISCHAEMIC [None]
  - DEHYDRATION [None]
  - HYPOXIA [None]
  - NAUSEA [None]
  - RENAL FAILURE ACUTE [None]
  - RHABDOMYOLYSIS [None]
  - VENTRICULAR TACHYCARDIA [None]
  - VOMITING [None]
